FAERS Safety Report 15366642 (Version 2)
Quarter: 2018Q3

REPORT INFORMATION
  Report Type: Spontaneous
  Country: BR (occurrence: BR)
  Receive Date: 20180910
  Receipt Date: 20180920
  Transmission Date: 20181010
  Serious: Yes (Hospitalization, Other)
  Sender: FDA-Public Use
  Company Number: BR-GLAXOSMITHKLINE-BR2017GSK190025

PATIENT
  Age: 24 Year
  Sex: Female
  Weight: 58 kg

DRUGS (2)
  1. METHOTREXATE. [Concomitant]
     Active Substance: METHOTREXATE
     Indication: PRODUCT USED FOR UNKNOWN INDICATION
     Dosage: UNK
  2. BENLYSTA [Suspect]
     Active Substance: BELIMUMAB
     Indication: SYSTEMIC LUPUS ERYTHEMATOSUS
     Dosage: 580 MG, UNK
     Dates: start: 20171123

REACTIONS (17)
  - Dry mouth [Unknown]
  - Somnolence [Unknown]
  - Liver disorder [Unknown]
  - Stress [Unknown]
  - Overdose [Recovered/Resolved]
  - Drug dose omission [Not Recovered/Not Resolved]
  - Arthralgia [Unknown]
  - Weight decreased [Unknown]
  - Product preparation error [Recovered/Resolved]
  - Oropharyngeal pain [Unknown]
  - Eye irritation [Unknown]
  - Hospitalisation [Unknown]
  - Abdominal discomfort [Unknown]
  - Pain in extremity [Unknown]
  - Nephritis [Unknown]
  - Pain [Unknown]
  - Cough [Unknown]

NARRATIVE: CASE EVENT DATE: 20171123
